FAERS Safety Report 15203767 (Version 2)
Quarter: 2018Q3

REPORT INFORMATION
  Report Type: Spontaneous
  Country: FR (occurrence: FR)
  Receive Date: 20180726
  Receipt Date: 20180926
  Transmission Date: 20181010
  Serious: Yes (Life-Threatening)
  Sender: FDA-Public Use
  Company Number: FR-TEVA-2018-FR-930249

PATIENT
  Age: 49 Year
  Sex: Female
  Weight: 70 kg

DRUGS (5)
  1. ATENOLOL EG [Suspect]
     Active Substance: ATENOLOL
     Indication: ACUTE CORONARY SYNDROME
     Dosage: 25 MILLIGRAM DAILY; 25 MG IN THE MORNING
     Route: 048
     Dates: start: 20180613, end: 20180614
  2. KARDEGIC [Suspect]
     Active Substance: ASPIRIN DL-LYSINE
     Indication: ACUTE CORONARY SYNDROME
     Dosage: 75 MILLIGRAM DAILY; 75 MG IN THE MORNING
     Route: 048
     Dates: start: 20180613
  3. BRILIQUE [Suspect]
     Active Substance: TICAGRELOR
     Indication: ACUTE CORONARY SYNDROME
     Dosage: 180 MILLIGRAM DAILY; 90 MG MORNING AND EVENING
     Route: 048
     Dates: start: 20180613, end: 20180614
  4. ATORVASTATINE ARROW [Suspect]
     Active Substance: ATORVASTATIN
     Indication: ACUTE CORONARY SYNDROME
     Dosage: 40 MILLIGRAM DAILY; 40 MG IN THE EVENING
     Route: 048
     Dates: start: 20180613
  5. LOVENOX [Suspect]
     Active Substance: ENOXAPARIN SODIUM
     Indication: ACUTE CORONARY SYNDROME
     Dosage: 7000 IU (INTERNATIONAL UNIT) DAILY;
     Route: 058
     Dates: start: 20180613

REACTIONS (2)
  - Atrioventricular block complete [Recovered/Resolved]
  - Bundle branch block left [Recovered/Resolved]

NARRATIVE: CASE EVENT DATE: 20180614
